FAERS Safety Report 8670323 (Version 7)
Quarter: 2013Q2

REPORT INFORMATION
  Report Type: Spontaneous
  Country: JP (occurrence: JP)
  Receive Date: 20120718
  Receipt Date: 20130422
  Transmission Date: 20140414
  Serious: Yes (Hospitalization, Other)
  Sender: FDA-Public Use
  Company Number: JP-PFIZER INC-2012168474

PATIENT
  Age: 60 Year
  Sex: Female

DRUGS (5)
  1. CELECOX [Suspect]
     Indication: RHEUMATOID ARTHRITIS
     Dosage: 200 MG, 2X/DAY
     Route: 048
     Dates: start: 20110601, end: 20110616
  2. RHEUMATREX [Suspect]
     Indication: RHEUMATOID ARTHRITIS
     Dosage: 6 MG, WEEKLY
     Route: 048
     Dates: start: 20110601, end: 20110616
  3. AZULFIDINE EN [Suspect]
     Indication: RHEUMATOID ARTHRITIS
     Dosage: 1000 (UNIT NOT PROVIDED)/DAY
     Route: 048
     Dates: start: 20110601, end: 20110616
  4. MUCOSTA [Suspect]
     Dosage: 200 MG, 1X/DAY
     Dates: start: 20110601, end: 20110616
  5. BREDININ [Suspect]
     Dosage: UNK
     Route: 048

REACTIONS (2)
  - Pericarditis [Recovered/Resolved]
  - Drug eruption [Unknown]
